FAERS Safety Report 8226422-9 (Version None)
Quarter: 2012Q1

REPORT INFORMATION
  Report Type: 
  Country: None (occurrence: None)
  Receive Date: 20120321
  Receipt Date: 20120314
  Transmission Date: 20120608
  Serious: Yes (Hospitalization)
  Sender: FDA-Public Use
  Company Number: US-CELGENEUS-163-21880-12031776

PATIENT
  Sex: Male

DRUGS (10)
  1. SPIRONOLACTONE [Concomitant]
     Route: 065
  2. ONDANSETRON HCL [Concomitant]
     Route: 065
  3. MELPHALAN HYDROCHLORIDE [Concomitant]
     Route: 065
  4. LEVOFLOXACIN [Concomitant]
     Route: 065
  5. HYDROMORPHONE HCL [Concomitant]
     Route: 065
  6. HYDROCODONE [Concomitant]
     Route: 065
  7. REVLIMID [Suspect]
     Indication: MULTIPLE MYELOMA
     Dosage: 25 MILLIGRAM
     Route: 048
     Dates: start: 20100601
  8. REVLIMID [Suspect]
     Dosage: 10 MILLIGRAM
     Route: 048
     Dates: start: 20110315
  9. WARFARIN SODIUM [Concomitant]
     Route: 065
  10. METOPROLOL SUCCINATE [Concomitant]
     Route: 065

REACTIONS (2)
  - BRONCHITIS [None]
  - BACK DISORDER [None]
